FAERS Safety Report 6076177-1 (Version None)
Quarter: 2009Q1

REPORT INFORMATION
  Report Type: 
  Country: None (occurrence: None)
  Receive Date: 20090212
  Receipt Date: 20090210
  Transmission Date: 20090719
  Serious: Yes (Death, Hospitalization)
  Sender: FDA-Public Use
  Company Number: PH-B.I. PHARMACEUTICALS,INC./RIDGEFIELD-2009-SG-00050SG

PATIENT
  Sex: Male

DRUGS (2)
  1. SPIRIVA [Suspect]
  2. COMBIVENT [Suspect]

REACTIONS (1)
  - EMPHYSEMA [None]
